FAERS Safety Report 9015723 (Version 1)
Quarter: 2013Q1

REPORT INFORMATION
  Report Type: Spontaneous
  Country: GB (occurrence: GB)
  Receive Date: 20130116
  Receipt Date: 20130116
  Transmission Date: 20140127
  Serious: Yes (Life-Threatening, Hospitalization, Disabling)
  Sender: FDA-Public Use
  Company Number: GB-009507513-1301GBR005717

PATIENT
  Age: 58 Year
  Sex: Male
  Weight: 67.12 kg

DRUGS (1)
  1. BCG LIVE [Suspect]
     Indication: BLADDER ADENOCARCINOMA STAGE I
     Dosage: 6 DF, QW6
     Route: 043
     Dates: start: 20121208, end: 20121221

REACTIONS (12)
  - Dyspnoea [Not Recovered/Not Resolved]
  - Bovine tuberculosis [Not Recovered/Not Resolved]
  - Malaise [Not Recovered/Not Resolved]
  - Body temperature increased [Unknown]
  - Jaundice [Unknown]
  - Epistaxis [Unknown]
  - Medical device complication [Unknown]
  - Pneumonia [Unknown]
  - Rectal haemorrhage [Unknown]
  - Malaise [Unknown]
  - Weight decreased [Unknown]
  - White blood cell count decreased [Unknown]
